FAERS Safety Report 7085826-0 (Version None)
Quarter: 2010Q4

REPORT INFORMATION
  Report Type: 
  Country: None (occurrence: None)
  Receive Date: 20101105
  Receipt Date: 20101025
  Transmission Date: 20110411
  Serious: Yes (Other)
  Sender: FDA-Public Use
  Company Number: FI-ROCHE-736483

PATIENT
  Sex: Male

DRUGS (3)
  1. XELODA [Suspect]
     Dosage: FREQUENCY REPORTED AS 2500 MG+2000 MG PER DAY FOR 14 DAYS FOLLOWED BY 7 DAY DRUG REST
     Route: 048
     Dates: start: 20100504, end: 20100620
  2. XELODA [Suspect]
     Dosage: FREQUENCY REPORTED AS 1000 MG+ 1000 MG PER DAY FOR 14 DAYS FOLLOWED BY 7 DAY DRUG REST
     Route: 048
     Dates: start: 20100621, end: 20100701
  3. XELODA [Suspect]
     Dosage: FREQUENCY - 1000 MG+1000 MG PER DAY FOR 14 DAYS FOLLOWED BY 7 DAY DRUG REST. STOPPED IN 2010
     Route: 048
     Dates: start: 20100909

REACTIONS (2)
  - CHEST PAIN [None]
  - PANCREATITIS [None]
